FAERS Safety Report 16208740 (Version 4)
Quarter: 2021Q3

REPORT INFORMATION
  Report Type: Spontaneous
  Country: US (occurrence: US)
  Receive Date: 20190417
  Receipt Date: 20210826
  Transmission Date: 20211014
  Serious: Yes (Hospitalization, Other)
  Sender: FDA-Public Use
  Company Number: US-VERTEX PHARMACEUTICALS-2019-003221

PATIENT
  Age: 3 Year
  Sex: Female
  Weight: 12.86 kg

DRUGS (4)
  1. URSODIOL. [Concomitant]
     Active Substance: URSODIOL
  2. PULMOZYME [Concomitant]
     Active Substance: DORNASE ALFA
  3. AZITHROMYCIN ANHYDROUS. [Concomitant]
     Active Substance: AZITHROMYCIN ANHYDROUS
  4. ORKAMBI [Suspect]
     Active Substance: IVACAFTOR\LUMACAFTOR
     Indication: CYSTIC FIBROSIS
     Dosage: 100/125 MG PACKET, BID
     Route: 048
     Dates: start: 20181204, end: 2019

REACTIONS (3)
  - Alanine aminotransferase increased [Recovered/Resolved]
  - Appendicitis [Recovered/Resolved]
  - Aspartate aminotransferase increased [Recovered/Resolved]

NARRATIVE: CASE EVENT DATE: 201903
